FAERS Safety Report 24686764 (Version 1)
Quarter: 2024Q4

REPORT INFORMATION
  Report Type: Spontaneous
  Country: FR (occurrence: FR)
  Receive Date: 20241202
  Receipt Date: 20241202
  Transmission Date: 20250114
  Serious: Yes (Hospitalization, Other)
  Sender: IOVANCE BIOTHERAPEUTICS MANUFACTURING LLC
  Company Number: FR-IOVANCE BIOTHERAPEUTICS INC.-IOV2024000003

PATIENT
  Age: 51 Year
  Sex: Female

DRUGS (7)
  1. PROLEUKIN [Suspect]
     Active Substance: ALDESLEUKIN
     Indication: Sjogren^s syndrome
     Dosage: 1 MILLION INTERNATIONAL UNIT, EVERY TWO WEEKS, MAINTENANCE PERIOD, 6 MONTHS
     Route: 058
     Dates: start: 20160802, end: 20160805
  2. PILOCARPINE [Concomitant]
     Active Substance: PILOCARPINE
     Indication: Product used for unknown indication
     Dosage: UNK
     Route: 065
  3. LARMABAK [Concomitant]
     Indication: Product used for unknown indication
     Route: 065
  4. CARBOXYMETHYLCELLULOSE SODIUM [Concomitant]
     Active Substance: CARBOXYMETHYLCELLULOSE SODIUM
     Indication: Product used for unknown indication
     Dosage: 4 MILLIGRAM/0.4 EYE DROPS
     Route: 065
  5. PREGABALIN [Concomitant]
     Active Substance: PREGABALIN
     Indication: Product used for unknown indication
     Route: 065
  6. RABEPRAZOLE [Concomitant]
     Active Substance: RABEPRAZOLE
     Indication: Product used for unknown indication
     Route: 065
  7. SODIUM ALGINATE\SODIUM BICARBONATE [Concomitant]
     Active Substance: SODIUM ALGINATE\SODIUM BICARBONATE
     Indication: Product used for unknown indication
     Route: 065

REACTIONS (2)
  - Urticaria [Recovered/Resolved]
  - Off label use [Unknown]

NARRATIVE: CASE EVENT DATE: 20160805
